FAERS Safety Report 5492086-0 (Version None)
Quarter: 2007Q4

REPORT INFORMATION
  Report Type: 
  Country: None (occurrence: None)
  Receive Date: 20071018
  Receipt Date: 20071011
  Transmission Date: 20080405
  Serious: Yes (Hospitalization)
  Sender: FDA-Public Use
  Company Number: TAP2007Q01342

PATIENT
  Age: 2 Year
  Sex: Female
  Weight: 22.7 kg

DRUGS (6)
  1. PREVACID [Suspect]
     Indication: DRUG USE FOR UNKNOWN INDICATION
     Dates: start: 20040101, end: 20060601
  2. ENALAPRIL MALEATE [Suspect]
     Indication: HYPERTENSION
     Dosage: 1 TAB., 1 IN 1 D, PER ORAL; 1 TAB., 1 IN 1 D, PER ORAL
     Route: 048
     Dates: start: 20040401, end: 20060601
  3. ENALAPRIL MALEATE [Suspect]
     Indication: HYPERTENSION
     Dosage: 1 TAB., 1 IN 1 D, PER ORAL; 1 TAB., 1 IN 1 D, PER ORAL
     Route: 048
     Dates: start: 20070907, end: 20071002
  4. AMLODIPINE [Suspect]
     Indication: HYPERTENSION
     Dosage: PER ORAL
     Route: 048
     Dates: start: 20040401, end: 20071002
  5. PREDNISONE [Concomitant]
  6. CYCLOSPORINE (CICLOSPORIN) [Concomitant]

REACTIONS (13)
  - AURICULAR SWELLING [None]
  - BONE MARROW DISORDER [None]
  - HELICOBACTER INFECTION [None]
  - LIP SWELLING [None]
  - NEUTROPENIA [None]
  - RESPIRATORY SYNCYTIAL VIRUS INFECTION [None]
  - SKIN CHAPPED [None]
  - SKIN EXFOLIATION [None]
  - SKIN HAEMORRHAGE [None]
  - SKIN INDURATION [None]
  - STAPHYLOCOCCAL SEPSIS [None]
  - SWELLING FACE [None]
  - URTICARIA [None]
